FAERS Safety Report 6349060-1 (Version None)
Quarter: 2009Q3

REPORT INFORMATION
  Report Type: 
  Country: None (occurrence: None)
  Receive Date: 20090911
  Receipt Date: 20090902
  Transmission Date: 20100115
  Serious: Yes (Death, Other)
  Sender: FDA-Public Use
  Company Number: JP-AVENTIS-200912472JP

PATIENT
  Age: 76 Year
  Sex: Male

DRUGS (5)
  1. RILUTEK [Suspect]
     Indication: AMYOTROPHIC LATERAL SCLEROSIS
     Dosage: DOSE QUANTITY: 100
     Dates: start: 20060629, end: 20090406
  2. CELTECT [Concomitant]
  3. METHYCOBAL                         /00056201/ [Concomitant]
  4. MUCOSOLVAN [Concomitant]
  5. ASTOMIN                            /00426502/ [Concomitant]

REACTIONS (3)
  - CONDITION AGGRAVATED [None]
  - PEMPHIGOID [None]
  - RESPIRATORY FAILURE [None]
